FAERS Safety Report 7110747-4 (Version None)
Quarter: 2010Q4

REPORT INFORMATION
  Report Type: 
  Country: None (occurrence: None)
  Receive Date: 20101118
  Receipt Date: 20101110
  Transmission Date: 20110411
  Serious: Yes (Hospitalization)
  Sender: FDA-Public Use
  Company Number: B0677837A

PATIENT
  Sex: Female

DRUGS (15)
  1. LAMICTAL [Suspect]
     Indication: EPILEPSY
     Dosage: 25MG TWICE PER DAY
     Route: 048
     Dates: start: 20100903, end: 20100915
  2. LAMICTAL [Suspect]
     Dosage: 25MG PER DAY
     Route: 048
     Dates: start: 20100916, end: 20100925
  3. LAMICTAL [Suspect]
     Dosage: 50MG PER DAY
     Route: 048
     Dates: start: 20100926, end: 20100929
  4. DEPAKENE [Concomitant]
     Indication: EPILEPSY
     Dosage: 200MG PER DAY
     Route: 048
     Dates: start: 20100501, end: 20100512
  5. DEPAKENE [Concomitant]
     Dosage: 400MG PER DAY
     Route: 048
     Dates: start: 20100513
  6. DEPAKENE [Concomitant]
     Dosage: 800MG PER DAY
     Route: 048
     Dates: start: 20100902
  7. MIGSIS [Concomitant]
     Indication: MIGRAINE
     Dosage: 10MG PER DAY
     Route: 048
     Dates: start: 20100501
  8. IBRUPROFEN [Concomitant]
     Indication: MIGRAINE
     Route: 048
     Dates: start: 20100925
  9. CALONAL [Concomitant]
     Route: 048
     Dates: start: 20100501, end: 20100924
  10. ROHYPNOL [Concomitant]
     Route: 048
  11. PAXIL [Concomitant]
     Route: 048
  12. DIAZEPAM [Concomitant]
     Route: 048
  13. GRIMAC [Concomitant]
     Route: 048
  14. DORAL [Concomitant]
     Route: 048
  15. ETICALM [Concomitant]
     Route: 048

REACTIONS (15)
  - ALANINE AMINOTRANSFERASE INCREASED [None]
  - ASPARTATE AMINOTRANSFERASE INCREASED [None]
  - BLOOD ALBUMIN DECREASED [None]
  - BLOOD CREATININE INCREASED [None]
  - BLOOD LACTATE DEHYDROGENASE INCREASED [None]
  - BLOOD UREA DECREASED [None]
  - BODY TEMPERATURE INCREASED [None]
  - C-REACTIVE PROTEIN INCREASED [None]
  - DRUG RASH WITH EOSINOPHILIA AND SYSTEMIC SYMPTOMS [None]
  - GAMMA-GLUTAMYLTRANSFERASE INCREASED [None]
  - MALAISE [None]
  - PROTEIN TOTAL DECREASED [None]
  - PYREXIA [None]
  - RASH [None]
  - WHITE BLOOD CELL COUNT INCREASED [None]
